FAERS Safety Report 18287351 (Version 8)
Quarter: 2025Q1

REPORT INFORMATION
  Report Type: Other
  Country: AU (occurrence: AU)
  Receive Date: 20200921
  Receipt Date: 20250103
  Transmission Date: 20250408
  Serious: Yes (Other)
  Sender: TOLMAR
  Company Number: AU-TOLMAR, INC.-20AU022756

PATIENT
  Sex: Male

DRUGS (4)
  1. ELIGARD [Suspect]
     Active Substance: LEUPROLIDE ACETATE
     Indication: Prostate cancer
     Dosage: 22.5 MG, Q 3 MONTH
     Route: 058
     Dates: start: 20200605
  2. ELIGARD [Suspect]
     Active Substance: LEUPROLIDE ACETATE
     Dosage: 22.5 MG, Q 3 MONTH
     Route: 058
  3. IRON [Suspect]
     Active Substance: IRON
     Indication: Product used for unknown indication
     Dates: start: 20240403
  4. UNSPECIFIED INGREDIENT [Suspect]
     Active Substance: UNSPECIFIED INGREDIENT
     Indication: Bone cancer

REACTIONS (15)
  - Bone cancer [Unknown]
  - Skin abrasion [Unknown]
  - Increased tendency to bruise [Unknown]
  - Rash [Unknown]
  - Fluid retention [Unknown]
  - Onychoclasis [Unknown]
  - Vision blurred [Unknown]
  - Lacrimation increased [Unknown]
  - Urinary incontinence [Not Recovered/Not Resolved]
  - Pruritus [Unknown]
  - Hot flush [Not Recovered/Not Resolved]
  - Fatigue [Not Recovered/Not Resolved]
  - Asthenia [Not Recovered/Not Resolved]
  - Weight increased [Not Recovered/Not Resolved]
  - Constipation [Unknown]
